FAERS Safety Report 18255876 (Version 1)
Quarter: 2020Q3

REPORT INFORMATION
  Report Type: Other
  Country: US (occurrence: US)
  Receive Date: 20200910
  Receipt Date: 20200910
  Transmission Date: 20201103
  Serious: No
  Sender: FDA-Public Use
  Company Number: US-LEADIANT BIOSCIENCES INC-2019STPI000521

PATIENT

DRUGS (7)
  1. KEPPRA [Concomitant]
     Active Substance: LEVETIRACETAM
  2. ZOFRAN [Concomitant]
     Active Substance: ONDANSETRON HYDROCHLORIDE
  3. PROGESTERONE. [Concomitant]
     Active Substance: PROGESTERONE
  4. GLEOSTINE [Concomitant]
     Active Substance: LOMUSTINE
  5. MATULANE [Suspect]
     Active Substance: PROCARBAZINE HYDROCHLORIDE
     Indication: BRAIN NEOPLASM MALIGNANT
     Dosage: 200 MILLIGRAM, QD ON DAYS 8?21
     Route: 048
     Dates: start: 20190703
  6. TESTOPEL [Concomitant]
     Active Substance: TESTOSTERONE
  7. ESTROGEN NOS;METHYLTESTOSTERONE [Concomitant]

REACTIONS (13)
  - Red blood cell count decreased [Unknown]
  - Monocyte count increased [Unknown]
  - Weight decreased [Unknown]
  - Somnolence [Unknown]
  - Decreased appetite [Unknown]
  - Haematocrit decreased [Unknown]
  - Neutrophil count decreased [Unknown]
  - Haemoglobin decreased [Unknown]
  - Nausea [Unknown]
  - Mastication disorder [Unknown]
  - White blood cell count decreased [Unknown]
  - Ocular discomfort [Unknown]
  - Lymphocyte count decreased [Unknown]
